FAERS Safety Report 4284465-4 (Version None)
Quarter: 2004Q1

REPORT INFORMATION
  Report Type: 
  Country: None (occurrence: None)
  Receive Date: 20040130
  Receipt Date: 20040116
  Transmission Date: 20041129
  Serious: Yes (Life-Threatening, Hospitalization, Other)
  Sender: FDA-Public Use
  Company Number: JP-SHR-03-017872

PATIENT
  Age: 59 Year
  Sex: Male
  Weight: 50 kg

DRUGS (10)
  1. FLUDARA [Suspect]
     Indication: STEM CELL TRANSPLANT
     Dosage: 45 MG 1X/DAY INTRAVENOUS
     Route: 042
     Dates: start: 20030625, end: 20030630
  2. CYCLOSPORINE [Suspect]
     Indication: IMMUNOSUPPRESSION
     Dosage: 159 MG 1X DAY IV DRIP
     Route: 041
     Dates: start: 20030702, end: 20030703
  3. NEORAL [Suspect]
     Indication: IMMUNOSUPPRESSION
     Dosage: SEE IMAGE
     Route: 048
     Dates: start: 20030704, end: 20030909
  4. NEORAL [Suspect]
     Indication: IMMUNOSUPPRESSION
     Dosage: SEE IMAGE
     Route: 048
     Dates: start: 20030910, end: 20031028
  5. NEORAL [Suspect]
     Indication: IMMUNOSUPPRESSION
     Dosage: SEE IMAGE
     Route: 048
     Dates: start: 20031029, end: 20031123
  6. NEORAL [Suspect]
     Indication: IMMUNOSUPPRESSION
     Dosage: SEE IMAGE
     Route: 048
     Dates: start: 20031124, end: 20031124
  7. NEORAL [Suspect]
     Indication: IMMUNOSUPPRESSION
     Dosage: SEE IMAGE
     Route: 048
     Dates: start: 20031125, end: 20031125
  8. NEORAL [Suspect]
     Indication: IMMUNOSUPPRESSION
     Dosage: SEE IMAGE
     Route: 048
     Dates: start: 20031126, end: 20031126
  9. BUSULFAN (BUSULFAN) [Concomitant]
  10. SULFAMETHOXAZOLE + TRIMETHOPRIM [Concomitant]

REACTIONS (17)
  - ALANINE AMINOTRANSFERASE INCREASED [None]
  - ANAEMIA [None]
  - ARRHYTHMIA [None]
  - ASPARTATE AMINOTRANSFERASE INCREASED [None]
  - ATRIAL FIBRILLATION [None]
  - BLOOD BILIRUBIN INCREASED [None]
  - BLOOD CREATININE INCREASED [None]
  - DRUG INEFFECTIVE [None]
  - LIVER DISORDER [None]
  - MYELODYSPLASTIC SYNDROME [None]
  - PERICARDIAL EFFUSION [None]
  - PERICARDITIS [None]
  - PLEURAL EFFUSION [None]
  - RASH [None]
  - RIGHT VENTRICULAR FAILURE [None]
  - URINE OUTPUT DECREASED [None]
  - VIRAL INFECTION [None]
